FAERS Safety Report 7794370-4 (Version None)
Quarter: 2011Q3

REPORT INFORMATION
  Report Type: 
  Country: None (occurrence: None)
  Receive Date: 20110929
  Receipt Date: 20110920
  Transmission Date: 20111222
  Serious: Yes (Other)
  Sender: FDA-Public Use
  Company Number: LEO-2011-00776

PATIENT
  Sex: Female

DRUGS (2)
  1. ROCEPHIN [Concomitant]
  2. INNOHEP [Suspect]
     Indication: PROPHYLAXIS
     Dosage: SUBCUTANEOUS
     Route: 058

REACTIONS (1)
  - HEPATITIS [None]
